FAERS Safety Report 24562548 (Version 3)
Quarter: 2024Q4

REPORT INFORMATION
  Report Type: Spontaneous
  Country: DE (occurrence: DE)
  Receive Date: 20241029
  Receipt Date: 20241217
  Transmission Date: 20250115
  Serious: Yes (Hospitalization)
  Sender: NOVARTIS
  Company Number: DE-002147023-NVSC2024DE208896

PATIENT
  Age: 85 Year
  Sex: Male
  Weight: 69 kg

DRUGS (9)
  1. PLUVICTO [Suspect]
     Active Substance: LUTETIUM LU-177 VIPIVOTIDE TETRAXETAN
     Indication: Hormone-refractory prostate cancer
     Dosage: 7154 MBQ
     Route: 042
     Dates: start: 20240902, end: 20240902
  2. ENTRESTO [Suspect]
     Active Substance: SACUBITRIL\VALSARTAN
     Indication: Product used for unknown indication
     Dosage: UNK, BID(1 -0-1)(24/26 MG)
     Route: 065
  3. PANTOPRAZOLE [Concomitant]
     Active Substance: PANTOPRAZOLE
     Indication: Product used for unknown indication
     Dosage: 40 MG, QD(1-0-0)
     Route: 065
  4. DAPAGLIFLOZIN [Concomitant]
     Active Substance: DAPAGLIFLOZIN
     Indication: Product used for unknown indication
     Dosage: 10 MG, QD(1-0-0)
     Route: 065
  5. APIXABAN [Concomitant]
     Active Substance: APIXABAN
     Indication: Product used for unknown indication
     Dosage: 2.5 MG, BID(1-0-1)
     Route: 065
  6. FOLIC ACID [Concomitant]
     Active Substance: FOLIC ACID
     Indication: Product used for unknown indication
     Dosage: 5 MG, QD(0-1-0)
     Route: 065
  7. TORSEMIDE [Concomitant]
     Active Substance: TORSEMIDE
     Indication: Product used for unknown indication
     Dosage: 10 MG, QD(1-0-0)
     Route: 065
  8. BISOPROLOL [Concomitant]
     Active Substance: BISOPROLOL
     Indication: Product used for unknown indication
     Dosage: 5 MG, BID(1-0-1)
     Route: 065
  9. PREDNISOLONE [Concomitant]
     Active Substance: PREDNISOLONE
     Indication: Product used for unknown indication
     Dosage: 10 MG, QD(1-0-0)
     Route: 065

REACTIONS (38)
  - Gastrointestinal disorder [Recovered/Resolved]
  - Vomiting [Recovered/Resolved]
  - General physical health deterioration [Recovered/Resolved]
  - Nausea [Recovered/Resolved]
  - Renal failure [Recovering/Resolving]
  - Urinary tract infection [Recovering/Resolving]
  - Hypotension [Unknown]
  - Hepatic steatosis [Unknown]
  - Flatulence [Unknown]
  - Fluid retention [Recovering/Resolving]
  - Urinary tract disorder [Not Recovered/Not Resolved]
  - Arrhythmia [Recovering/Resolving]
  - Inflammation [Recovering/Resolving]
  - Red blood cell count decreased [Not Recovered/Not Resolved]
  - Haemoglobin decreased [Not Recovered/Not Resolved]
  - Haematocrit decreased [Not Recovered/Not Resolved]
  - Mean cell haemoglobin concentration [Recovered/Resolved]
  - Red cell distribution width increased [Not Recovered/Not Resolved]
  - Prothrombin time prolonged [Unknown]
  - International normalised ratio increased [Unknown]
  - Blood sodium decreased [Unknown]
  - Blood urea increased [Unknown]
  - Glomerular filtration rate decreased [Recovering/Resolving]
  - Protein total decreased [Unknown]
  - Low density lipoprotein increased [Unknown]
  - Granulocytes abnormal [Unknown]
  - Blood cholesterol increased [Unknown]
  - Blood triglycerides increased [Unknown]
  - Blood uric acid increased [Unknown]
  - C-reactive protein increased [Recovered/Resolved]
  - White blood cell count increased [Unknown]
  - Red blood cell count increased [Unknown]
  - Urinary casts [Unknown]
  - Bacterial infection [Unknown]
  - Blood creatinine increased [Recovering/Resolving]
  - Dyspnoea [Unknown]
  - Pleural effusion [Unknown]
  - Anaemia [Unknown]

NARRATIVE: CASE EVENT DATE: 20240101
